FAERS Safety Report 4896147-6 (Version None)
Quarter: 2006Q1

REPORT INFORMATION
  Report Type: 
  Country: None (occurrence: None)
  Receive Date: 20060131
  Receipt Date: 20060119
  Transmission Date: 20060701
  Serious: Yes (Other)
  Sender: FDA-Public Use
  Company Number: FR-JNJFOC-20050800835

PATIENT
  Age: 78 Year
  Sex: Male

DRUGS (9)
  1. REMICADE [Suspect]
     Route: 042
  2. REMICADE [Suspect]
     Indication: RHEUMATOID ARTHRITIS
     Route: 042
  3. METHOTREXATE [Concomitant]
     Route: 065
  4. METHOTREXATE [Concomitant]
     Indication: RHEUMATOID ARTHRITIS
     Route: 065
  5. CORTICOSTEROIDS NOS [Concomitant]
     Route: 065
  6. CORTANCYL [Concomitant]
     Indication: RHEUMATOID ARTHRITIS
     Dosage: TEMPORARILY WITHDRAWN IN 2000
     Route: 065
     Dates: start: 19930101
  7. COVERSYL [Concomitant]
     Route: 065
  8. OMEPRAZOLE [Concomitant]
     Indication: STEROID THERAPY
     Route: 065
     Dates: start: 19930101
  9. ELISOR [Concomitant]
     Route: 065

REACTIONS (9)
  - AORTIC ANEURYSM [None]
  - CARDIAC FAILURE [None]
  - ENTEROBACTER PNEUMONIA [None]
  - EXTRAVASATION [None]
  - HAEMATOMA [None]
  - INFUSION RELATED REACTION [None]
  - INJECTION SITE HAEMORRHAGE [None]
  - SCEDOSPORIUM INFECTION [None]
  - TENDONITIS [None]
